FAERS Safety Report 10168970 (Version 3)
Quarter: 2014Q4

REPORT INFORMATION
  Report Type: Spontaneous
  Country: US (occurrence: US)
  Receive Date: 20140513
  Receipt Date: 20141201
  Transmission Date: 20150528
  Serious: Yes (Death, Hospitalization, Other)
  Sender: FDA-Public Use
  Company Number: US-JNJFOC-20140505399

PATIENT
  Age: 24 Year
  Sex: Female
  Weight: 72.58 kg

DRUGS (7)
  1. TYLENOL EXTRA STRENGTH [Suspect]
     Active Substance: ACETAMINOPHEN
     Route: 048
  2. TYLENOL EXTRA STRENGTH [Suspect]
     Active Substance: ACETAMINOPHEN
     Indication: PRODUCT USED FOR UNKNOWN INDICATION
     Route: 048
     Dates: start: 201001, end: 201205
  3. TYLENOL COLD MULTI-SYMPTOM SEVERE [Suspect]
     Active Substance: ACETAMINOPHEN\DEXTROMETHORPHAN HYDROBROMIDE\GUAIFENESIN\PHENYLEPHRINE HYDROCHLORIDE
     Indication: PRODUCT USED FOR UNKNOWN INDICATION
     Route: 048
     Dates: start: 201001, end: 201205
  4. TYLENOL COLD MULTI-SYMPTOM DAYTIME [Suspect]
     Active Substance: ACETAMINOPHEN\DEXTROMETHORPHAN HYDROBROMIDE\PHENYLEPHRINE HYDROCHLORIDE
     Indication: PRODUCT USED FOR UNKNOWN INDICATION
     Route: 048
     Dates: start: 201001, end: 201205
  5. TYLENOL PM [Suspect]
     Active Substance: ACETAMINOPHEN\DIPHENHYDRAMINE
     Indication: PRODUCT USED FOR UNKNOWN INDICATION
     Route: 048
     Dates: start: 201001, end: 201205
  6. TYLENOL REGULAR STRENGTH [Suspect]
     Active Substance: ACETAMINOPHEN
     Route: 048
  7. TYLENOL REGULAR STRENGTH [Suspect]
     Active Substance: ACETAMINOPHEN
     Indication: PRODUCT USED FOR UNKNOWN INDICATION
     Route: 048
     Dates: start: 201001, end: 201205

REACTIONS (7)
  - Acute hepatic failure [Fatal]
  - Confusional state [Unknown]
  - Vaginal haemorrhage [Unknown]
  - Cardiac arrest [Unknown]
  - Acute respiratory distress syndrome [Unknown]
  - Amnesia [Unknown]
  - Mental status changes [Unknown]

NARRATIVE: CASE EVENT DATE: 201202
